FAERS Safety Report 13103192 (Version 1)
Quarter: 2017Q1

REPORT INFORMATION
  Report Type: Spontaneous
  Country: US (occurrence: US)
  Receive Date: 20170110
  Receipt Date: 20170110
  Transmission Date: 20170428
  Serious: Yes (Death)
  Sender: FDA-Public Use
  Company Number: US-INSYS THERAPEUTICS, INC-INS201612-000850

PATIENT
  Age: 27 Year
  Sex: Male

DRUGS (3)
  1. ALPRAZOLAM. [Suspect]
     Active Substance: ALPRAZOLAM
  2. BUPRENORPHINE. [Suspect]
     Active Substance: BUPRENORPHINE
  3. FENTANYL. [Suspect]
     Active Substance: FENTANYL
     Indication: DRUG ABUSE
     Route: 051

REACTIONS (2)
  - Drug abuse [Fatal]
  - Toxicity to various agents [Fatal]
